FAERS Safety Report 9707684 (Version 1)
Quarter: 2013Q4

REPORT INFORMATION
  Report Type: Spontaneous
  Country: US (occurrence: None)
  Receive Date: 20131125
  Receipt Date: 20131125
  Transmission Date: 20140711
  Serious: Yes (Death, Hospitalization, Congenital Anomaly)
  Sender: FDA-Public Use
  Company Number: None

PATIENT
  Age: 32 Year
  Sex: Female
  Weight: 63.5 kg

DRUGS (1)
  1. HYDROXYPROGESTERONE CAPROATE [Suspect]

REACTIONS (5)
  - Haemorrhage in pregnancy [None]
  - Exposure during pregnancy [None]
  - Emotional disorder [None]
  - Premature delivery [None]
  - Vaginal haemorrhage [None]
